FAERS Safety Report 24719109 (Version 3)
Quarter: 2024Q4

REPORT INFORMATION
  Report Type: Spontaneous
  Country: US (occurrence: US)
  Receive Date: 20241210
  Receipt Date: 20241231
  Transmission Date: 20250115
  Serious: Yes (Other)
  Sender: MALLINCKRODT
  Company Number: US-MALLINCKRODT-MNK202407306

PATIENT
  Sex: Male

DRUGS (4)
  1. CORTICOTROPIN [Suspect]
     Active Substance: CORTICOTROPIN
     Indication: Product used for unknown indication
     Dosage: UNKNOWN
  2. BENZALKONIUM CHLORIDE [Suspect]
     Active Substance: BENZALKONIUM CHLORIDE
     Indication: Product used for unknown indication
     Dosage: UNKNOWN
  3. DEXAMETHASONE [Concomitant]
     Active Substance: DEXAMETHASONE
     Dosage: UNKNOWN
  4. DEXAMETHASONE [Concomitant]
     Active Substance: DEXAMETHASONE
     Dosage: UNKNOWN (TAPERED OFF)

REACTIONS (10)
  - Cataract [Unknown]
  - Optic nerve injury [Not Recovered/Not Resolved]
  - Papilloedema [Not Recovered/Not Resolved]
  - Glaucoma [Unknown]
  - Visual impairment [Not Recovered/Not Resolved]
  - Optic atrophy [Not Recovered/Not Resolved]
  - Pain [Unknown]
  - Injection site discharge [Unknown]
  - Injection site reaction [Unknown]
  - Therapeutic product effect incomplete [Unknown]
